FAERS Safety Report 6891597-0 (Version None)
Quarter: 2010Q3

REPORT INFORMATION
  Report Type: 
  Country: None (occurrence: None)
  Receive Date: 20100731
  Receipt Date: 20070828
  Transmission Date: 20110219
  Serious: No
  Sender: FDA-Public Use
  Company Number: US-PFIZER INC-2007072394

PATIENT
  Sex: Female
  Weight: 78.6 kg

DRUGS (8)
  1. NEURONTIN [Suspect]
     Indication: MULTIPLE SCLEROSIS
     Dosage: TDD:400 MG
     Dates: start: 20070101
  2. GABAPENTIN [Interacting]
     Indication: MULTIPLE SCLEROSIS
     Dosage: TDD:800 MG
     Dates: start: 20070101
  3. NAPROXEN [Interacting]
  4. TRAMADOL HYDROCHLORIDE [Interacting]
  5. LEVOXYL [Concomitant]
  6. FLUOXETINE [Concomitant]
  7. ALUPENT [Concomitant]
     Indication: ASTHMA
     Route: 055
  8. QVAR 40 [Concomitant]
     Indication: ASTHMA
     Route: 055

REACTIONS (4)
  - ARTHRITIS [None]
  - DIZZINESS [None]
  - DRUG INTERACTION [None]
  - SOMNOLENCE [None]
